FAERS Safety Report 6431124-5 (Version None)
Quarter: 2009Q4

REPORT INFORMATION
  Report Type: 
  Country: None (occurrence: None)
  Receive Date: 20091106
  Receipt Date: 20091028
  Transmission Date: 20100525
  Serious: Yes (Hospitalization)
  Sender: FDA-Public Use
  Company Number: US-ABBOTT-09P-163-0605739-00

PATIENT
  Sex: Female
  Weight: 68.1 kg

DRUGS (4)
  1. NIASPAN [Suspect]
     Indication: BLOOD CHOLESTEROL INCREASED
     Dates: start: 20030101
  2. NORVASC [Concomitant]
     Indication: HYPERTENSION
     Dosage: DAILY
  3. DIOVAN [Concomitant]
     Indication: HYPERTENSION
     Dosage: DAILY
  4. TEMAZEPAM [Concomitant]
     Indication: SLEEP DISORDER
     Dosage: UNKNOWN

REACTIONS (4)
  - COUGH [None]
  - DYSPNOEA [None]
  - FLUSHING [None]
  - THROMBOSIS [None]
